FAERS Safety Report 16648939 (Version 2)
Quarter: 2019Q4

REPORT INFORMATION
  Report Type: Report from Study
  Country: SK (occurrence: SK)
  Receive Date: 20190730
  Receipt Date: 20191120
  Transmission Date: 20200122
  Serious: No
  Sender: FDA-Public Use
  Company Number: SK-JNJFOC-20190733510

PATIENT
  Age: 72 Year
  Sex: Male

DRUGS (1)
  1. STELARA [Suspect]
     Active Substance: USTEKINUMAB
     Indication: PSORIASIS
     Route: 058
     Dates: start: 20100408, end: 20180914

REACTIONS (6)
  - Staphylococcal skin infection [Unknown]
  - Cholelithiasis [Unknown]
  - Diverticulum intestinal [Unknown]
  - Latent tuberculosis [Unknown]
  - Superinfection bacterial [Unknown]
  - Skin candida [Unknown]

NARRATIVE: CASE EVENT DATE: 20150409
